FAERS Safety Report 7518887-2 (Version None)
Quarter: 2011Q2

REPORT INFORMATION
  Report Type: 
  Country: None (occurrence: None)
  Receive Date: 20110523
  Receipt Date: 20110508
  Transmission Date: 20111010
  Serious: Yes (Other)
  Sender: FDA-Public Use
  Company Number: ALLO20110002

PATIENT
  Age: 51 Year
  Sex: Male
  Weight: 65 kg

DRUGS (2)
  1. ALLOPURINOL TAB [Suspect]
     Indication: COLITIS ULCERATIVE
     Dosage: 300 MG
  2. AZATHIOPRINE [Suspect]
     Indication: COLITIS ULCERATIVE
     Dosage: 250 MG

REACTIONS (2)
  - TOXICITY TO VARIOUS AGENTS [None]
  - APLASIA PURE RED CELL [None]
